FAERS Safety Report 13304739 (Version 4)
Quarter: 2024Q4

REPORT INFORMATION
  Report Type: Spontaneous
  Country: JP (occurrence: JP)
  Receive Date: 20170308
  Receipt Date: 20241211
  Transmission Date: 20250115
  Serious: Yes (Life-Threatening, Hospitalization, Other)
  Sender: ACCORD
  Company Number: JP-ACCORD-048934

PATIENT
  Age: 66 Year
  Sex: Male

DRUGS (6)
  1. CAPECITABINE [Suspect]
     Active Substance: CAPECITABINE
     Indication: Rectal cancer stage IV
     Dosage: DAY 1 EVENING TO DAY 15 MORNING, EVERY 3 WEEKS
  2. IRINOTECAN HYDROCHLORIDE [Suspect]
     Active Substance: IRINOTECAN HYDROCHLORIDE
     Indication: Rectal cancer stage IV
     Dosage: DAY 1 EVERY 3 WEEKS
  3. OXALIPLATIN [Suspect]
     Active Substance: OXALIPLATIN
     Indication: Rectal cancer stage IV
     Dosage: DAY 1, EVERY 3 WEEKS
  4. BEVACIZUMAB [Suspect]
     Active Substance: BEVACIZUMAB
     Indication: Rectal cancer stage IV
     Dosage: EVERY 3 WEEKS
  5. TS-1 [Suspect]
     Active Substance: GIMERACIL\OTERACIL POTASSIUM\TEGAFUR
     Indication: Rectal cancer stage IV
     Dosage: S-1 80 MG/M2 /DAY, EVENING DAY 1 TO MORNING DAY 15, EVERY 3 WEEKS
  6. BEVACIZUMAB [Suspect]
     Active Substance: BEVACIZUMAB
     Indication: Rectal cancer stage IV
     Dosage: EVERY 3 WEEKS

REACTIONS (3)
  - Fournier^s gangrene [Recovering/Resolving]
  - Proctalgia [Recovering/Resolving]
  - Pyrexia [Recovering/Resolving]
